FAERS Safety Report 17468222 (Version 1)
Quarter: 2020Q1

REPORT INFORMATION
  Report Type: Report from Study
  Country: GB (occurrence: GB)
  Receive Date: 20200227
  Receipt Date: 20200227
  Transmission Date: 20200409
  Serious: Yes (Hospitalization)
  Sender: FDA-Public Use
  Company Number: GB-JNJFOC-20200228834

PATIENT
  Sex: Male
  Weight: 97.9 kg

DRUGS (26)
  1. MEBEVERINE [Concomitant]
     Active Substance: MEBEVERINE
     Dates: start: 20130615
  2. METHOTREXATE. [Concomitant]
     Active Substance: METHOTREXATE
     Dates: start: 20150803, end: 20190307
  3. DOUBLEBASE [Concomitant]
     Active Substance: ISOPROPYL MYRISTATE\PARAFFIN
     Dates: start: 20130730
  4. BECLOMETHASONE                     /00212602/ [Concomitant]
     Active Substance: BECLOMETHASONE
     Dates: start: 20140407
  5. PREGABALIN. [Concomitant]
     Active Substance: PREGABALIN
     Dates: start: 20140515
  6. TRIMOVATE                          /00456501/ [Concomitant]
     Dates: start: 20141020
  7. EPADERM [Concomitant]
     Active Substance: MINERAL OIL\PETROLATUM\WAX, EMULSIFYING
     Dates: start: 20150119
  8. CETIRIZINE [Concomitant]
     Active Substance: CETIRIZINE HYDROCHLORIDE
     Dates: start: 20180129
  9. FINASTERIDE. [Concomitant]
     Active Substance: FINASTERIDE
     Dates: start: 20180531, end: 20190302
  10. HUMALOG [Concomitant]
     Active Substance: INSULIN LISPRO
     Dates: start: 20120619
  11. BETNOVATE [Concomitant]
     Active Substance: BETAMETHASONE
     Dates: start: 20141020
  12. NORTRIPTYLINE [Concomitant]
     Active Substance: NORTRIPTYLINE
     Dates: start: 20160816
  13. LANTUS [Concomitant]
     Active Substance: INSULIN GLARGINE
     Dates: start: 20120619
  14. TRAMADOL. [Concomitant]
     Active Substance: TRAMADOL
     Dates: start: 20130615
  15. EUMOVATE [Concomitant]
     Active Substance: CLOBETASONE BUTYRATE
     Dates: start: 20130730
  16. FLIXONASE [Concomitant]
     Active Substance: FLUTICASONE PROPIONATE
     Dates: start: 20140407
  17. DOVOBET [Concomitant]
     Active Substance: BETAMETHASONE\CALCIPOTRIENE
     Dates: start: 20130730
  18. DIPROBASE                          /01132701/ [Concomitant]
     Dates: start: 20140519
  19. GLYCERYL TRINITRATE [Concomitant]
     Active Substance: NITROGLYCERIN
     Dates: start: 20150115
  20. TAMSULOSIN HYDROCHLORIDE. [Concomitant]
     Active Substance: TAMSULOSIN HYDROCHLORIDE
     Dates: start: 20180531, end: 20190302
  21. USTEKINUMAB [Suspect]
     Active Substance: USTEKINUMAB
     Indication: PSORIASIS
     Route: 058
     Dates: start: 20161101
  22. SIMVASTATIN. [Concomitant]
     Active Substance: SIMVASTATIN
     Dates: start: 20130615
  23. LANSOPRAZOLE. [Concomitant]
     Active Substance: LANSOPRAZOLE
     Dates: start: 20140710
  24. FOLIC ACID. [Concomitant]
     Active Substance: FOLIC ACID
     Dates: start: 20150803
  25. PEPTAC                             /00550802/ [Concomitant]
     Dates: start: 20140515
  26. IPRATROPIUM [Concomitant]
     Active Substance: IPRATROPIUM
     Dates: start: 20180223

REACTIONS (1)
  - Transurethral prostatectomy [Recovered/Resolved]

NARRATIVE: CASE EVENT DATE: 20190302
